FAERS Safety Report 22919162 (Version 2)
Quarter: 2023Q4

REPORT INFORMATION
  Report Type: Report from Study
  Country: US (occurrence: US)
  Receive Date: 20230907
  Receipt Date: 20231204
  Transmission Date: 20240110
  Serious: Yes (Other)
  Sender: FDA-Public Use
  Company Number: US-ABBVIE-5397761

PATIENT
  Sex: Male

DRUGS (2)
  1. HUMIRA [Suspect]
     Active Substance: ADALIMUMAB
     Indication: Crohn^s disease
     Dosage: CITRATE FREE FORM STRENGTH: 40 MILLIGRAM
     Route: 058
     Dates: start: 20180910
  2. HUMIRA [Suspect]
     Active Substance: ADALIMUMAB
     Dosage: CITRATE FREE FORM STRENGTH: 40 MILLIGRAM
     Route: 058

REACTIONS (2)
  - Aortic aneurysm [Not Recovered/Not Resolved]
  - Postoperative thrombosis [Recovering/Resolving]

NARRATIVE: CASE EVENT DATE: 20190101
